FAERS Safety Report 19833533 (Version 1)
Quarter: 2021Q3

REPORT INFORMATION
  Report Type: Spontaneous
  Country: NL (occurrence: NL)
  Receive Date: 20210915
  Receipt Date: 20210915
  Transmission Date: 20211014
  Serious: Yes (Hospitalization)
  Sender: FDA-Public Use
  Company Number: NL-TEVA-2021-NL-1952352

PATIENT
  Age: 65 Year
  Sex: Male

DRUGS (3)
  1. FLUCONAZOLE. [Interacting]
     Active Substance: FLUCONAZOLE
     Indication: OROPHARYNGEAL CANDIDIASIS
     Route: 065
  2. ESOMEPRAZOLE. [Suspect]
     Active Substance: ESOMEPRAZOLE MAGNESIUM
     Indication: PRODUCT USED FOR UNKNOWN INDICATION
     Route: 065
  3. RIVAROXABAN [Concomitant]
     Active Substance: RIVAROXABAN
     Indication: PULMONARY EMBOLISM
     Route: 065

REACTIONS (12)
  - Gastrointestinal disorder [Recovering/Resolving]
  - Aphasia [Recovered/Resolved]
  - Toxicity to various agents [Unknown]
  - Confusional state [Recovered/Resolved]
  - Drug interaction [Unknown]
  - Metabolic alkalosis [Recovering/Resolving]
  - Electrocardiogram QT prolonged [Recovered/Resolved]
  - Hypocalcaemia [Recovering/Resolving]
  - Hypomagnesaemia [Recovering/Resolving]
  - Tremor [Recovering/Resolving]
  - Hypokalaemia [Recovering/Resolving]
  - Bundle branch block right [Recovering/Resolving]
